FAERS Safety Report 16042803 (Version 1)
Quarter: 2019Q1

REPORT INFORMATION
  Report Type: Report from Study
  Country: US (occurrence: US)
  Receive Date: 20190306
  Receipt Date: 20190306
  Transmission Date: 20190418
  Serious: Yes (Hospitalization, Other)
  Sender: FDA-Public Use
  Company Number: US-JAZZ-2019-US-002441

PATIENT
  Age: 81 Year
  Sex: Female

DRUGS (2)
  1. JZP-258 (SODIUM OXYBATE) [Suspect]
     Active Substance: SODIUM OXYBATE
     Indication: NARCOLEPSY
  2. JZP-258 (SODIUM OXYBATE) [Suspect]
     Active Substance: SODIUM OXYBATE
     Indication: CATAPLEXY

REACTIONS (1)
  - Hyperkalaemia [Unknown]

NARRATIVE: CASE EVENT DATE: 201901
